FAERS Safety Report 8718856 (Version 3)
Quarter: 2012Q4

REPORT INFORMATION
  Report Type: 
  Country: CO (occurrence: CO)
  Receive Date: 20120810
  Receipt Date: 20121018
  Transmission Date: 20130627
  Serious: Yes (Hospitalization)
  Sender: FDA-Public Use
  Company Number: CO-BIOMARINP-002827

PATIENT
  Age: 18 Year
  Sex: Female

DRUGS (1)
  1. NAGLAZYME [Suspect]
     Indication: MUCOPOLYSACCHARIDOSIS VI
     Route: 041
     Dates: start: 20100930

REACTIONS (4)
  - Intracranial pressure increased [Recovering/Resolving]
  - Dizziness [Unknown]
  - Headache [Unknown]
  - Encephalocele [Recovering/Resolving]
